FAERS Safety Report 4289473-5 (Version None)
Quarter: 2004Q1

REPORT INFORMATION
  Report Type: 
  Country: None (occurrence: None)
  Receive Date: 20040210
  Receipt Date: 20040128
  Transmission Date: 20041129
  Serious: Yes (Hospitalization, Other)
  Sender: FDA-Public Use
  Company Number: 200411222GDDC

PATIENT
  Age: 70 Year
  Sex: Male
  Weight: 50 kg

DRUGS (13)
  1. RIFADIN [Suspect]
     Indication: PULMONARY TUBERCULOSIS
     Route: 048
     Dates: start: 20030528, end: 20030712
  2. ISCOTIN [Concomitant]
     Indication: PULMONARY TUBERCULOSIS
     Route: 048
     Dates: start: 20030528, end: 20030712
  3. ETHAMBUTOL HCL [Concomitant]
     Indication: PULMONARY TUBERCULOSIS
     Route: 048
     Dates: start: 20030528, end: 20030712
  4. PYRAZINAMIDE [Concomitant]
     Indication: PULMONARY TUBERCULOSIS
     Route: 048
     Dates: start: 20030528, end: 20030712
  5. PYDOXAL [Concomitant]
     Indication: PULMONARY TUBERCULOSIS
     Route: 048
     Dates: start: 20030528
  6. PURSENNID [Concomitant]
     Indication: CONSTIPATION
     Route: 048
     Dates: start: 20030528
  7. MAGNESIUM OXIDE [Concomitant]
     Indication: CONSTIPATION
     Route: 048
     Dates: start: 20030528
  8. ZYLORIC [Concomitant]
     Indication: HYPERURICAEMIA
     Route: 048
     Dates: start: 20030528
  9. BUFFERIN [Concomitant]
     Indication: ANGINA PECTORIS
     Route: 048
     Dates: start: 20030528
  10. ARTIST [Concomitant]
     Indication: ANGINA PECTORIS
     Route: 048
     Dates: start: 20030528
  11. SIGMART [Concomitant]
     Indication: ANGINA PECTORIS
     Route: 048
     Dates: start: 20030528
  12. VASOLAN [Concomitant]
     Indication: ANGINA PECTORIS
     Route: 048
     Dates: start: 20030528
  13. EVIPROSTAT [Concomitant]
     Dosage: DOSE: 3 TABLETS
     Route: 048
     Dates: start: 20030528

REACTIONS (3)
  - EOSINOPHILIC PNEUMONIA [None]
  - INTERSTITIAL LUNG DISEASE [None]
  - LYMPHOCYTE STIMULATION TEST POSITIVE [None]
